FAERS Safety Report 8191516-3 (Version None)
Quarter: 2012Q1

REPORT INFORMATION
  Report Type: 
  Country: None (occurrence: None)
  Receive Date: 20120221
  Receipt Date: 20111102
  Transmission Date: 20120608
  Serious: No
  Sender: FDA-Public Use
  Company Number: 045126

PATIENT
  Sex: Female

DRUGS (1)
  1. LACOSAMIDE [Suspect]
     Dosage: 200 MG/20 ORAL DAILY
     Route: 048
     Dates: start: 20100901, end: 20110101

REACTIONS (1)
  - DRUG INEFFECTIVE [None]
